FAERS Safety Report 11496307 (Version 1)
Quarter: 2015Q3

REPORT INFORMATION
  Report Type: Spontaneous
  Country: ZA (occurrence: ZA)
  Receive Date: 20150911
  Receipt Date: 20150911
  Transmission Date: 20151125
  Serious: Yes (Other)
  Sender: FDA-Public Use
  Company Number: ZA-CELGENE-ZAF-2015086377

PATIENT
  Age: 120 Month
  Sex: Female

DRUGS (2)
  1. THALIDOMIDE [Suspect]
     Active Substance: THALIDOMIDE
     Indication: TUBERCULOMA OF CENTRAL NERVOUS SYSTEM
     Dosage: 4 MILLIGRAM/KILOGRAM
     Route: 048
  2. THALIDOMIDE [Suspect]
     Active Substance: THALIDOMIDE
     Indication: OFF LABEL USE

REACTIONS (4)
  - Brain herniation [Recovered/Resolved]
  - Therapeutic response unexpected [Unknown]
  - Tuberculosis of central nervous system [Recovered/Resolved]
  - Hydrocephalus [Recovered/Resolved]
